FAERS Safety Report 24812838 (Version 2)
Quarter: 2025Q1

REPORT INFORMATION
  Report Type: Spontaneous
  Country: US (occurrence: US)
  Receive Date: 20250107
  Receipt Date: 20250113
  Transmission Date: 20250408
  Serious: No
  Sender: ROCHE
  Company Number: US-ROCHE-10000169726

PATIENT
  Age: 66 Year
  Sex: Female
  Weight: 74.84 kg

DRUGS (3)
  1. ACTEMRA ACTPEN [Suspect]
     Active Substance: TOCILIZUMAB
     Indication: Blindness unilateral
     Dosage: 162 MG/0.9M
     Route: 058
     Dates: start: 20240124
  2. ACTEMRA ACTPEN [Suspect]
     Active Substance: TOCILIZUMAB
     Indication: Giant cell arteritis
     Route: 058
  3. ALPRAZOLAM [Concomitant]
     Active Substance: ALPRAZOLAM
     Route: 048

REACTIONS (7)
  - Needle issue [Unknown]
  - Product quality issue [Unknown]
  - Product dose omission issue [Unknown]
  - Device malfunction [Unknown]
  - Off label use [Unknown]
  - Product storage error [Unknown]
  - No adverse event [Unknown]

NARRATIVE: CASE EVENT DATE: 20241224
